FAERS Safety Report 8861336 (Version 1)
Quarter: 2012Q4

REPORT INFORMATION
  Report Type: Spontaneous
  Country: US (occurrence: None)
  Receive Date: 20121022
  Receipt Date: 20121022
  Transmission Date: 20130627
  Serious: Yes (Other)
  Sender: FDA-Public Use
  Company Number: 2012P1060825

PATIENT
  Age: 33 Year
  Sex: Male
  Weight: 99.34 kg

DRUGS (3)
  1. METHYLPREDNISOLONE [Suspect]
     Indication: CT SCAN
     Route: 048
     Dates: start: 20120923, end: 20120924
  2. METHYLPREDNISOLONE [Suspect]
  3. GAMMAGARD [Concomitant]

REACTIONS (2)
  - Loss of consciousness [None]
  - Grand mal convulsion [None]
